FAERS Safety Report 8132040-3 (Version None)
Quarter: 2012Q1

REPORT INFORMATION
  Report Type: 
  Country: None (occurrence: None)
  Receive Date: 20120207
  Receipt Date: 20120124
  Transmission Date: 20120608
  Serious: Yes (Other)
  Sender: FDA-Public Use
  Company Number: JPI-P-019513

PATIENT
  Age: 47 Year
  Sex: Female

DRUGS (2)
  1. XYREM [Suspect]
     Indication: NARCOLEPSY
     Dosage: 5 GM (2.5 GM, 2 IN 1 D), ORAL (TITRATING DOSE), ORAL 9 GM (4.5 GM, 2 IN 1 D), ORAL
     Route: 048
     Dates: start: 20071101
  2. XYREM [Suspect]
     Indication: NARCOLEPSY
     Dosage: 5 GM (2.5 GM, 2 IN 1 D), ORAL (TITRATING DOSE), ORAL 9 GM (4.5 GM, 2 IN 1 D), ORAL
     Route: 048
     Dates: start: 20071114

REACTIONS (12)
  - HAEMATOCHEZIA [None]
  - MUCOUS STOOLS [None]
  - DECREASED APPETITE [None]
  - HEADACHE [None]
  - PANIC ATTACK [None]
  - DRUG INEFFECTIVE [None]
  - NIGHT SWEATS [None]
  - OCULAR HYPERAEMIA [None]
  - SUPRAVENTRICULAR TACHYCARDIA [None]
  - EYE DISCHARGE [None]
  - WEIGHT DECREASED [None]
  - CONSTIPATION [None]
